FAERS Safety Report 9208166 (Version 1)
Quarter: 2013Q2

REPORT INFORMATION
  Report Type: Spontaneous
  Country: GB (occurrence: GB)
  Receive Date: 20130403
  Receipt Date: 20130403
  Transmission Date: 20140414
  Serious: Yes (Other)
  Sender: FDA-Public Use
  Company Number: GB-MYLANLABS-2013S1006608

PATIENT
  Age: 66 Year
  Sex: Female
  Weight: 69 kg

DRUGS (1)
  1. LOSARTAN [Suspect]
     Indication: HYPERTENSION
     Dates: start: 20130219, end: 20130228

REACTIONS (6)
  - Palpitations [Recovering/Resolving]
  - Blood pressure increased [Recovering/Resolving]
  - Ocular hyperaemia [Recovering/Resolving]
  - Headache [Not Recovered/Not Resolved]
  - Epistaxis [Recovering/Resolving]
  - Abnormal sensation in eye [Recovering/Resolving]
